FAERS Safety Report 7098289-6 (Version None)
Quarter: 2010Q4

REPORT INFORMATION
  Report Type: 
  Country: None (occurrence: None)
  Receive Date: 20101112
  Receipt Date: 20101012
  Transmission Date: 20110411
  Serious: No
  Sender: FDA-Public Use
  Company Number: A0880300A

PATIENT
  Sex: Female

DRUGS (10)
  1. TREXIMET [Suspect]
     Indication: MIGRAINE
     Dosage: 85MG AS REQUIRED
     Route: 048
     Dates: start: 20090101
  2. ATENOLOL [Concomitant]
  3. AMLODIPINE [Concomitant]
  4. UNSPECIFIED MEDICATION [Concomitant]
  5. TRAZODONE [Concomitant]
  6. DIAZEPAM [Concomitant]
  7. VENLAFAXINE [Concomitant]
  8. ASPIRIN [Concomitant]
  9. SIMVASTATIN [Concomitant]
  10. EYE DROPS [Concomitant]
     Indication: CORNEAL TRANSPLANT

REACTIONS (1)
  - ABDOMINAL PAIN UPPER [None]
